FAERS Safety Report 23633522 (Version 2)
Quarter: 2024Q1

REPORT INFORMATION
  Report Type: Report from Study
  Country: US (occurrence: US)
  Receive Date: 20240314
  Receipt Date: 20240329
  Transmission Date: 20240410
  Serious: Yes (Other)
  Sender: FDA-Public Use
  Company Number: US-ALNYLAM PHARMACEUTICALS, INC.-ALN-2024-001378

PATIENT

DRUGS (1)
  1. GIVLAARI [Suspect]
     Active Substance: GIVOSIRAN SODIUM
     Indication: Product used for unknown indication
     Dosage: 222 MILLIGRAM (189 MG/ML), MONTHLY
     Route: 058
     Dates: start: 20220128, end: 20220128

REACTIONS (4)
  - Porphyria acute [Unknown]
  - Seizure [Unknown]
  - Abdominal pain [Unknown]
  - Injection site pain [Unknown]
